FAERS Safety Report 5907078-4 (Version None)
Quarter: 2008Q4

REPORT INFORMATION
  Report Type: 
  Country: None (occurrence: None)
  Receive Date: 20081002
  Receipt Date: 20081002
  Transmission Date: 20090506
  Serious: Yes (Hospitalization)
  Sender: FDA-Public Use
  Company Number: None

PATIENT
  Sex: Male
  Weight: 82.6 kg

DRUGS (2)
  1. CISPLATIN [Suspect]
     Dosage: 150 MG
     Dates: end: 20080918
  2. TAXOTERE [Suspect]
     Dosage: 150 MG
     Dates: end: 20080918

REACTIONS (3)
  - ABDOMINAL PAIN [None]
  - DIARRHOEA [None]
  - NAUSEA [None]
